FAERS Safety Report 13026743 (Version 1)
Quarter: 2016Q4

REPORT INFORMATION
  Report Type: Spontaneous
  Country: GB (occurrence: GB)
  Receive Date: 20161214
  Receipt Date: 20161214
  Transmission Date: 20170207
  Serious: Yes (Other)
  Sender: FDA-Public Use
  Company Number: GB-TEVA-717895ACC

PATIENT
  Age: 25 Year
  Sex: Male
  Weight: 79.37 kg

DRUGS (4)
  1. OMEPRAZOLE. [Concomitant]
     Active Substance: OMEPRAZOLE
  2. VENLAFAXINE [Suspect]
     Active Substance: VENLAFAXINE HYDROCHLORIDE
     Indication: SOCIAL ANXIETY DISORDER
     Route: 048
     Dates: start: 20160601
  3. VITAMIN D [Concomitant]
     Active Substance: CHOLECALCIFEROL
  4. MEBEVERINE [Concomitant]
     Active Substance: MEBEVERINE

REACTIONS (3)
  - Tremor [Recovering/Resolving]
  - Male orgasmic disorder [Not Recovered/Not Resolved]
  - Erectile dysfunction [Not Recovered/Not Resolved]

NARRATIVE: CASE EVENT DATE: 20160701
